FAERS Safety Report 7757290-7 (Version None)
Quarter: 2011Q3

REPORT INFORMATION
  Report Type: 
  Country: None (occurrence: None)
  Receive Date: 20110916
  Receipt Date: 20110912
  Transmission Date: 20111222
  Serious: Yes (Death, Hospitalization)
  Sender: FDA-Public Use
  Company Number: US-B.I. PHARMACEUTICALS,INC./RIDGEFIELD-2011-BP-18055BP

PATIENT
  Age: 71 Year
  Sex: Female
  Weight: 73.48 kg

DRUGS (21)
  1. PLAVIX [Concomitant]
  2. POTASSIUM CHLORIDE [Concomitant]
     Dosage: 20 MEQ
  3. RANEXA [Concomitant]
     Dosage: 2000 MG
  4. GABAPENTIN [Concomitant]
     Dosage: 1800 MG
  5. VITAMIN B12 INJECTIONS [Concomitant]
  6. LASIX [Concomitant]
     Dosage: 20 MG
  7. HOME O2 [Concomitant]
  8. PULMICORT UPDRAFTS [Concomitant]
  9. REGLAN [Concomitant]
     Dosage: 10 MG
  10. MIRALAX [Concomitant]
  11. PRADAXA [Suspect]
     Route: 048
     Dates: start: 20101201, end: 20110708
  12. ASPIRIN [Concomitant]
     Dosage: 81 NR
  13. UPDRAFT WITH ALBUTEROL [Concomitant]
  14. PRILOSEC [Concomitant]
     Dosage: 20 MG
  15. CARAFATE [Concomitant]
     Dosage: 2 G
  16. TOPROL-XL [Concomitant]
     Dosage: 150 MG
  17. CALTRATE D [Concomitant]
  18. DILTIAZEM [Concomitant]
     Dosage: 480 MG
  19. AMIODARONE HCL [Concomitant]
     Dosage: 200 MG
  20. SLOW IRON [Concomitant]
  21. ISOSORBIDE DINITRATE [Concomitant]
     Dosage: 120 MG

REACTIONS (3)
  - RECTAL HAEMORRHAGE [None]
  - DEATH [None]
  - GASTROINTESTINAL HAEMORRHAGE [None]
